FAERS Safety Report 7498958-X (Version None)
Quarter: 2011Q2

REPORT INFORMATION
  Report Type: 
  Country: None (occurrence: None)
  Receive Date: 20110524
  Receipt Date: 20110513
  Transmission Date: 20111010
  Serious: Yes (Hospitalization)
  Sender: FDA-Public Use
  Company Number: ES-ELI_LILLY_AND_COMPANY-ES201105004506

PATIENT
  Sex: Female
  Weight: 50 kg

DRUGS (3)
  1. CALCIUM-SANDOZ FORTE               /00009901/ [Concomitant]
     Indication: MINERAL SUPPLEMENTATION
     Dosage: 1000 MG, QD
     Route: 048
  2. DURAGESIC-100 [Concomitant]
     Indication: PAIN
     Dosage: 12.5 UG, OTHER 3 DAYS
     Route: 061
  3. FORTEO [Suspect]
     Indication: OSTEOPOROSIS
     Dosage: 20 UG, QD
     Route: 058
     Dates: start: 20110507

REACTIONS (2)
  - NAUSEA [None]
  - BACK PAIN [None]
